FAERS Safety Report 20772184 (Version 1)
Quarter: 2022Q2

REPORT INFORMATION
  Report Type: Spontaneous
  Country: DE (occurrence: DE)
  Receive Date: 20220502
  Receipt Date: 20220502
  Transmission Date: 20220721
  Serious: Yes (Death, Other)
  Sender: FDA-Public Use
  Company Number: DE-SUN PHARMACEUTICAL INDUSTRIES LTD-2022R1-335107

PATIENT
  Age: 23 Year
  Sex: Male

DRUGS (3)
  1. GEMCITABINE [Suspect]
     Active Substance: GEMCITABINE
     Indication: Perivascular epithelioid cell tumour
     Dosage: 900 MILLIGRAM/SQ. METER ON DAYS 1 AND 8
     Route: 065
  2. DOCETAXEL [Suspect]
     Active Substance: DOCETAXEL
     Indication: Perivascular epithelioid cell tumour
     Dosage: 75 MILLIGRAM/SQ. METER, EVERY 3 WEEKS (12 CYCLES)
     Route: 065
  3. DOCETAXEL [Suspect]
     Active Substance: DOCETAXEL
     Dosage: 100 MILLIGRAM/SQ. METER, ON DAY 8 EVERY 21 D
     Route: 065

REACTIONS (1)
  - Drug ineffective [Fatal]
